FAERS Safety Report 4865001-8 (Version None)
Quarter: 2005Q4

REPORT INFORMATION
  Report Type: 
  Country: None (occurrence: None)
  Receive Date: 20051223
  Receipt Date: 20051213
  Transmission Date: 20060501
  Serious: Yes (Hospitalization)
  Sender: FDA-Public Use
  Company Number: PHRM2005FR03268

PATIENT
  Age: 55 Year
  Sex: Female

DRUGS (6)
  1. ELISOR [Suspect]
     Dosage: 40 MG/DAY
     Route: 048
     Dates: start: 20050905, end: 20051018
  2. CORVASAL [Suspect]
     Dosage: 1 TAB/DAY
     Route: 048
     Dates: start: 20050910, end: 20051016
  3. PLAVIX [Suspect]
     Dosage: 1 TAB/DAY
     Route: 048
     Dates: start: 20050905, end: 20051018
  4. KARDEGIC [Concomitant]
     Dosage: 75 MG/DAY
     Route: 048
     Dates: start: 20050905, end: 20051018
  5. SECTRAL [Concomitant]
     Dosage: 200 MG/DAY
     Route: 048
     Dates: start: 20050905
  6. LUDIOMIL [Suspect]
     Indication: DEPRESSION
     Route: 048
     Dates: end: 20051018

REACTIONS (4)
  - ACUTE CORONARY SYNDROME [None]
  - BUNDLE BRANCH BLOCK LEFT [None]
  - NEUTROPENIA [None]
  - STENT PLACEMENT [None]
